FAERS Safety Report 9666269 (Version 2)
Quarter: 2013Q4

REPORT INFORMATION
  Report Type: Report from Study
  Country: FR (occurrence: FR)
  Receive Date: 20131104
  Receipt Date: 20131127
  Transmission Date: 20140711
  Serious: Yes (Other)
  Sender: FDA-Public Use
  Company Number: FR-PFIZER INC-2013309975

PATIENT
  Age: 26 Year
  Sex: Male
  Weight: 72 kg

DRUGS (6)
  1. ATGAM [Suspect]
     Indication: BONE MARROW FAILURE
     Dosage: 2800 MG, DAILY
     Route: 042
     Dates: start: 20130607, end: 20130610
  2. CICLOSPORIN [Concomitant]
     Indication: BONE MARROW FAILURE
     Dosage: 350 MG, DAILY
  3. SOLU-MEDROL [Concomitant]
     Indication: BONE MARROW FAILURE
  4. POLARAMINE [Concomitant]
     Indication: PREMEDICATION
  5. PARACETAMOL [Concomitant]
     Indication: PREMEDICATION
  6. ZELITREX [Concomitant]
     Indication: PREMEDICATION

REACTIONS (6)
  - Hepatocellular injury [Unknown]
  - Tooth abscess [Recovered/Resolved]
  - Pyrexia [Recovered/Resolved]
  - Pyrexia [Recovered/Resolved]
  - Chest pain [Recovered/Resolved]
  - Infusion site reaction [Recovered/Resolved]
